FAERS Safety Report 21493648 (Version 1)
Quarter: 2022Q4

REPORT INFORMATION
  Report Type: Spontaneous
  Country: US (occurrence: None)
  Receive Date: 20221021
  Receipt Date: 20221021
  Transmission Date: 20230112
  Serious: Yes (Disabling)
  Sender: FDA-Public Use
  Company Number: None

PATIENT
  Age: 45 Year
  Sex: Female
  Weight: 69.75 kg

DRUGS (1)
  1. MONTELUKAST [Suspect]
     Active Substance: MONTELUKAST SODIUM
     Dates: start: 20201130

REACTIONS (4)
  - Asthma [None]
  - Neuropathy peripheral [None]
  - Palpitations [None]
  - Adverse drug reaction [None]

NARRATIVE: CASE EVENT DATE: 20201224
